FAERS Safety Report 25879557 (Version 1)
Quarter: 2025Q4

REPORT INFORMATION
  Report Type: Spontaneous
  Country: GB (occurrence: GB)
  Receive Date: 20251003
  Receipt Date: 20251003
  Transmission Date: 20260117
  Serious: Yes (Other)
  Sender: PURDUE
  Company Number: GB-PURDUE-USA-2025-0321110

PATIENT
  Age: 45 Year
  Sex: Female

DRUGS (7)
  1. ACETAMINOPHEN\CODEINE PHOSPHATE [Suspect]
     Active Substance: ACETAMINOPHEN\CODEINE PHOSPHATE
     Indication: Product used for unknown indication
     Dosage: UNK
     Route: 048
  2. QUININE [Suspect]
     Active Substance: QUININE
     Indication: Product used for unknown indication
     Dosage: 4.8 GRAM
     Route: 065
  3. DOMPERIDONE [Suspect]
     Active Substance: DOMPERIDONE
     Indication: Product used for unknown indication
     Dosage: UNK
     Route: 065
  4. SUMATRIPTAN [Suspect]
     Active Substance: SUMATRIPTAN
     Indication: Product used for unknown indication
     Dosage: UNK
     Route: 065
  5. PIZOTYLINE [Suspect]
     Active Substance: PIZOTYLINE
     Indication: Product used for unknown indication
     Dosage: UNK
     Route: 065
  6. DULOXETINE [Suspect]
     Active Substance: DULOXETINE
     Indication: Product used for unknown indication
     Dosage: UNK
     Route: 065
  7. RABEPRAZOLE [Suspect]
     Active Substance: RABEPRAZOLE
     Indication: Product used for unknown indication
     Dosage: UNK
     Route: 065

REACTIONS (2)
  - Blindness [Recovering/Resolving]
  - Overdose [Unknown]
